FAERS Safety Report 6712524-2 (Version None)
Quarter: 2010Q2

REPORT INFORMATION
  Report Type: 
  Country: None (occurrence: None)
  Receive Date: 20100505
  Receipt Date: 20100505
  Transmission Date: 20101027
  Serious: No
  Sender: FDA-Public Use
  Company Number: None

PATIENT
  Age: 53 Year
  Sex: Male
  Weight: 131.9967 kg

DRUGS (2)
  1. SPIRONOLACTONE [Suspect]
     Indication: DIURETIC THERAPY
     Dosage: 1 TAB DAILY EVERY DAY MOUTH
     Route: 048
     Dates: start: 20100421
  2. SPIRONOLACTONE [Suspect]
     Indication: OEDEMA PERIPHERAL
     Dosage: 1 TAB DAILY EVERY DAY MOUTH
     Route: 048
     Dates: start: 20100421

REACTIONS (3)
  - BREAST PAIN [None]
  - BREAST SWELLING [None]
  - NIPPLE PAIN [None]
